FAERS Safety Report 22333789 (Version 1)
Quarter: 2023Q2

REPORT INFORMATION
  Report Type: Spontaneous
  Country: US (occurrence: US)
  Receive Date: 20230517
  Receipt Date: 20230517
  Transmission Date: 20230722
  Serious: No
  Sender: FDA-Public Use
  Company Number: US-KARYOPHARM-2023KPT001208

PATIENT

DRUGS (14)
  1. XPOVIO [Suspect]
     Active Substance: SELINEXOR
     Indication: Follicular dendritic cell sarcoma
     Dosage: 20 MG, 2X/WEEK
     Route: 048
  2. ATORVASTATIN [Concomitant]
     Active Substance: ATORVASTATIN
  3. AZELASTINE [Concomitant]
     Active Substance: AZELASTINE
  4. CETIRIZINE [Concomitant]
     Active Substance: CETIRIZINE HYDROCHLORIDE
  5. DEXILANT [Concomitant]
     Active Substance: DEXLANSOPRAZOLE
  6. DILTIAZEM [Concomitant]
     Active Substance: DILTIAZEM
  7. EPINEPHRINE [Concomitant]
     Active Substance: EPINEPHRINE
  8. FAMOTIDINE [Concomitant]
     Active Substance: FAMOTIDINE
  9. FUROSEMIDE [Concomitant]
     Active Substance: FUROSEMIDE
  10. IRBESARTAN [Concomitant]
     Active Substance: IRBESARTAN
  11. LORAZEPAM [Concomitant]
     Active Substance: LORAZEPAM
  12. ONDANSETRON [Concomitant]
     Active Substance: ONDANSETRON
  13. PATADAY [Concomitant]
     Active Substance: OLOPATADINE HYDROCHLORIDE
  14. SILDENAFIL [Concomitant]
     Active Substance: SILDENAFIL

REACTIONS (2)
  - Off label use [Unknown]
  - No adverse event [Unknown]
